FAERS Safety Report 8854633 (Version 1)
Quarter: 2012Q4

REPORT INFORMATION
  Report Type: 
  Country: US (occurrence: US)
  Receive Date: 20121023
  Receipt Date: 20121023
  Transmission Date: 20130627
  Serious: No
  Sender: FDA-Public Use
  Company Number: US-MYLANLABS-2012S1017880

PATIENT
  Age: 70 Year
  Sex: Male
  Weight: 89.36 kg

DRUGS (3)
  1. BUPROPION HYDROCHLORIDE EXTENDED RELEASE (XL) [Suspect]
     Indication: DEPRESSION
     Route: 048
     Dates: start: 20120724
  2. AMLODIPINE BESILATE W/ OLMESARTAN MEDOXOMIL [Concomitant]
     Indication: BLOOD PRESSURE
     Route: 048
  3. CITALOPRAM [Concomitant]
     Route: 048

REACTIONS (3)
  - Eyelid oedema [Not Recovered/Not Resolved]
  - Oedema peripheral [Not Recovered/Not Resolved]
  - Headache [Recovered/Resolved]
